FAERS Safety Report 6639889-4 (Version None)
Quarter: 2010Q1

REPORT INFORMATION
  Report Type: 
  Country: None (occurrence: None)
  Receive Date: 20100318
  Receipt Date: 20100309
  Transmission Date: 20100710
  Serious: Yes (Hospitalization)
  Sender: FDA-Public Use
  Company Number: US-ASTRAZENECA-2010SE10125

PATIENT
  Age: 59 Year
  Sex: Female
  Weight: 77.6 kg

DRUGS (15)
  1. SEROQUEL [Suspect]
     Indication: BIPOLAR DISORDER
     Route: 048
     Dates: start: 20090101, end: 20091101
  2. SEROQUEL [Suspect]
     Indication: SLEEP DISORDER
     Route: 048
     Dates: start: 20090101, end: 20091101
  3. SEROQUEL [Suspect]
     Route: 048
     Dates: start: 20100101
  4. SEROQUEL [Suspect]
     Route: 048
     Dates: start: 20100101
  5. ATIVAN [Concomitant]
  6. GEODON [Concomitant]
  7. SYNTHROID [Concomitant]
  8. COGENTIN [Concomitant]
  9. METFORMIN HYDROCHLORIDE [Concomitant]
  10. ASPIRIN [Concomitant]
  11. FOSAMAX [Concomitant]
  12. LOBID [Concomitant]
  13. VIT B12 [Concomitant]
  14. BENADRYL [Concomitant]
  15. RESTORIL [Concomitant]
     Indication: SLEEP DISORDER

REACTIONS (8)
  - AFFECT LABILITY [None]
  - APPETITE DISORDER [None]
  - DISORIENTATION [None]
  - DRUG DOSE OMISSION [None]
  - HALLUCINATION [None]
  - HIATUS HERNIA [None]
  - WEIGHT DECREASED [None]
  - WEIGHT INCREASED [None]
